FAERS Safety Report 20990675 (Version 1)
Quarter: 2022Q2

REPORT INFORMATION
  Report Type: Spontaneous
  Country: US (occurrence: US)
  Receive Date: 20220622
  Receipt Date: 20220622
  Transmission Date: 20220721
  Serious: No
  Sender: FDA-Public Use
  Company Number: US-BRISTOL-MYERS SQUIBB COMPANY-2022-047348

PATIENT
  Age: 73 Year
  Sex: Female

DRUGS (1)
  1. SPRYCEL [Suspect]
     Active Substance: DASATINIB
     Indication: Prostate cancer
     Route: 048
     Dates: start: 20220427

REACTIONS (5)
  - Headache [Unknown]
  - Fatigue [Unknown]
  - Swelling [Unknown]
  - Hypoaesthesia [Unknown]
  - Off label use [Unknown]
